FAERS Safety Report 24878551 (Version 1)
Quarter: 2025Q1

REPORT INFORMATION
  Report Type: Spontaneous
  Country: BE (occurrence: BE)
  Receive Date: 20250123
  Receipt Date: 20250123
  Transmission Date: 20250409
  Serious: Yes (Hospitalization)
  Sender: PFIZER
  Company Number: BE-PFIZER INC-PV202500008722

PATIENT
  Age: 80 Year
  Sex: Female

DRUGS (1)
  1. VYNDAQEL [Suspect]
     Active Substance: TAFAMIDIS MEGLUMINE
     Indication: Cardiac amyloidosis

REACTIONS (2)
  - Cardiac failure [Unknown]
  - N-terminal prohormone brain natriuretic peptide increased [Unknown]
